FAERS Safety Report 23432038 (Version 14)
Quarter: 2025Q2

REPORT INFORMATION
  Report Type: Spontaneous
  Country: US (occurrence: US)
  Receive Date: 20240123
  Receipt Date: 20250601
  Transmission Date: 20250717
  Serious: No
  Sender: DAIICHI
  Company Number: US-DAIICHI SANKYO, INC.-DSU-2023-148127AA

PATIENT
  Sex: Female

DRUGS (3)
  1. ENHERTU [Suspect]
     Active Substance: FAM-TRASTUZUMAB DERUXTECAN-NXKI
     Indication: Breast cancer metastatic
     Dosage: UNK, ONCE EVERY 3 WK
     Route: 065
  2. ENHERTU [Suspect]
     Active Substance: FAM-TRASTUZUMAB DERUXTECAN-NXKI
     Dosage: UNK, ONCE EVERY 3 WK
     Route: 065
  3. ENHERTU [Suspect]
     Active Substance: FAM-TRASTUZUMAB DERUXTECAN-NXKI
     Dosage: UNK, ONCE EVERY 3 WK
     Route: 065
     Dates: start: 20240202, end: 20240202

REACTIONS (28)
  - Viral infection [Unknown]
  - Bedridden [Unknown]
  - Anxiety [Not Recovered/Not Resolved]
  - Euphoric mood [Unknown]
  - Apathy [Not Recovered/Not Resolved]
  - Emotional distress [Not Recovered/Not Resolved]
  - Emotional disorder [Not Recovered/Not Resolved]
  - Hair growth abnormal [Unknown]
  - Unevaluable event [Unknown]
  - Oedema [Unknown]
  - Gastrointestinal disorder [Unknown]
  - Pain [Unknown]
  - Feeling abnormal [Unknown]
  - Injury [Unknown]
  - Vertigo [Unknown]
  - Muscle spasms [Unknown]
  - Dyspepsia [Unknown]
  - Abdominal discomfort [Unknown]
  - Vomiting [Unknown]
  - Nausea [Unknown]
  - Vomiting [Unknown]
  - Nausea [Unknown]
  - Fatigue [Not Recovered/Not Resolved]
  - Fatigue [Not Recovered/Not Resolved]
  - Asthenia [Unknown]
  - Drug ineffective [Unknown]
  - Disease progression [Unknown]
  - Intentional product use issue [Unknown]

NARRATIVE: CASE EVENT DATE: 20240518
